FAERS Safety Report 20518909 (Version 1)
Quarter: 2022Q1

REPORT INFORMATION
  Report Type: Spontaneous
  Country: US (occurrence: None)
  Receive Date: 20220225
  Receipt Date: 20220225
  Transmission Date: 20220423
  Serious: No
  Sender: FDA-Public Use
  Company Number: None

PATIENT
  Age: 51 Year
  Sex: Female

DRUGS (1)
  1. HUMIRA [Suspect]
     Active Substance: ADALIMUMAB
     Indication: Psoriasis
     Dosage: OTHER FREQUENCY : OTHER;?
     Route: 058
     Dates: end: 202101

REACTIONS (3)
  - Urticaria [None]
  - Rash [None]
  - Psoriasis [None]

NARRATIVE: CASE EVENT DATE: 20220118
